FAERS Safety Report 6079033-8 (Version None)
Quarter: 2009Q1

REPORT INFORMATION
  Report Type: 
  Country: None (occurrence: None)
  Receive Date: 20090216
  Receipt Date: 20090202
  Transmission Date: 20090719
  Serious: Yes (Hospitalization)
  Sender: FDA-Public Use
  Company Number: US-ROCHE-612116

PATIENT
  Sex: Female
  Weight: 72.6 kg

DRUGS (1)
  1. CAPECITABINE [Suspect]
     Dosage: DOSE: 2500 MG AM AND PM
     Route: 065
     Dates: end: 20090202

REACTIONS (1)
  - LOWER LIMB FRACTURE [None]
